FAERS Safety Report 4809183-2 (Version None)
Quarter: 2005Q4

REPORT INFORMATION
  Report Type: 
  Country: None (occurrence: None)
  Receive Date: 20051021
  Receipt Date: 20030901
  Transmission Date: 20060501
  Serious: Yes (Other)
  Sender: FDA-Public Use
  Company Number: EWC030936073

PATIENT
  Age: 31 Year
  Sex: Male

DRUGS (3)
  1. OLANZAPINE [Suspect]
     Dosage: 15 MG/DAY
  2. VALPROATE SODIUM [Concomitant]
  3. PROTON (OMEPRAZOLE) [Concomitant]

REACTIONS (3)
  - COUGH [None]
  - NEUTROPHIL COUNT INCREASED [None]
  - VOMITING [None]
